FAERS Safety Report 9625756 (Version 1)
Quarter: 2013Q4

REPORT INFORMATION
  Report Type: Spontaneous
  Country: FR (occurrence: FR)
  Receive Date: 20131016
  Receipt Date: 20131016
  Transmission Date: 20140711
  Serious: Yes (Hospitalization)
  Sender: FDA-Public Use
  Company Number: PHHY2013FR113272

PATIENT
  Age: 69 Year
  Sex: Male

DRUGS (5)
  1. ZOMETA [Suspect]
     Indication: LUNG NEOPLASM MALIGNANT
     Dosage: 4 MG, UNK
     Route: 042
     Dates: start: 20130913, end: 20130913
  2. METHYLPREDNISOLONE [Suspect]
     Indication: LUNG NEOPLASM MALIGNANT
     Dosage: 80 MG, DAILY
     Route: 042
     Dates: start: 20130913, end: 20130913
  3. TAXOTERE [Suspect]
     Indication: LUNG NEOPLASM MALIGNANT
     Dosage: 120 MG, DAILY
     Route: 042
     Dates: start: 20130913, end: 20130913
  4. CORTANCYL [Suspect]
     Indication: LUNG NEOPLASM MALIGNANT
     Dosage: 40 MG, DAILY
     Route: 048
     Dates: start: 20130913, end: 20130913
  5. CORTANCYL [Suspect]
     Dosage: 80 MG, DAILY
     Route: 048
     Dates: start: 20130914, end: 20130914

REACTIONS (1)
  - Neutropenia [Recovered/Resolved]
